FAERS Safety Report 4818079-1 (Version None)
Quarter: 2005Q4

REPORT INFORMATION
  Report Type: 
  Country: None (occurrence: None)
  Receive Date: 20051102
  Receipt Date: 20050923
  Transmission Date: 20060501
  Serious: Yes (Hospitalization)
  Sender: FDA-Public Use
  Company Number: US-GLAXOSMITHKLINE-A0578641A

PATIENT
  Age: 33 Year
  Sex: Female
  Weight: 60 kg

DRUGS (1)
  1. WELLBUTRIN [Suspect]
     Indication: ANXIETY
     Dosage: 150MG TWICE PER DAY
     Route: 048
     Dates: start: 20050719, end: 20050918

REACTIONS (3)
  - CONVULSION [None]
  - OVERDOSE [None]
  - SUICIDE ATTEMPT [None]
